FAERS Safety Report 16862624 (Version 1)
Quarter: 2019Q3

REPORT INFORMATION
  Report Type: Spontaneous
  Country: US (occurrence: US)
  Receive Date: 20190927
  Receipt Date: 20190927
  Transmission Date: 20191005
  Serious: Yes (Hospitalization)
  Sender: FDA-Public Use
  Company Number: US-MALLINCKRODT-T201906600

PATIENT
  Age: 62 Year
  Sex: Female

DRUGS (1)
  1. H.P. ACTHAR [Suspect]
     Active Substance: CORTICOTROPIN
     Indication: FIBROMYALGIA
     Dosage: 80 UNITS (1ML),  TWO TIMES A WEEK
     Route: 058
     Dates: start: 201908

REACTIONS (2)
  - Product use in unapproved indication [Unknown]
  - Intestinal obstruction [Unknown]

NARRATIVE: CASE EVENT DATE: 201909
